FAERS Safety Report 6032194-9 (Version None)
Quarter: 2009Q1

REPORT INFORMATION
  Report Type: 
  Country: None (occurrence: None)
  Receive Date: 20090108
  Receipt Date: 20081230
  Transmission Date: 20090719
  Serious: Yes (Hospitalization, Other)
  Sender: FDA-Public Use
  Company Number: FR-ROXANE LABORATORIES, INC.-2008-RO-00500RO

PATIENT
  Age: 23 Year
  Sex: Female

DRUGS (1)
  1. LITHIUM CARBONATE [Suspect]
     Indication: DEPRESSION
     Dosage: 750MG

REACTIONS (4)
  - CENTRAL PONTINE MYELINOLYSIS [None]
  - DIABETES INSIPIDUS [None]
  - HYPONATRAEMIA [None]
  - THERAPEUTIC AGENT TOXICITY [None]
